FAERS Safety Report 20757373 (Version 1)
Quarter: 2022Q2

REPORT INFORMATION
  Report Type: Spontaneous
  Country: DE (occurrence: DE)
  Receive Date: 20220427
  Receipt Date: 20220427
  Transmission Date: 20220720
  Serious: Yes (Other)
  Sender: FDA-Public Use
  Company Number: DE-BAYER-2022A058138

PATIENT
  Age: 24 Year
  Sex: Male
  Weight: 62 kg

DRUGS (2)
  1. GADOBUTROL [Suspect]
     Active Substance: GADOBUTROL
     Indication: Magnetic resonance imaging
     Dosage: 6 ML, ONCE
     Route: 042
     Dates: start: 20220413, end: 20220413
  2. GADOBUTROL [Suspect]
     Active Substance: GADOBUTROL
     Indication: Abdominal symptom

REACTIONS (3)
  - Choking [Recovered/Resolved]
  - Nausea [Recovered/Resolved]
  - Vomiting [Recovered/Resolved]

NARRATIVE: CASE EVENT DATE: 20220413
